FAERS Safety Report 19030168 (Version 1)
Quarter: 2021Q1

REPORT INFORMATION
  Report Type: Spontaneous
  Country: MX (occurrence: MX)
  Receive Date: 20210319
  Receipt Date: 20210319
  Transmission Date: 20210420
  Serious: Yes (Hospitalization)
  Sender: FDA-Public Use
  Company Number: NVSC2021MX061611

PATIENT
  Age: 54 Year
  Sex: Male

DRUGS (19)
  1. HYDROXYCHLOROQUINE SULFATE. [Suspect]
     Active Substance: HYDROXYCHLOROQUINE SULFATE
     Indication: COVID-19
     Dosage: UNK (DAY 3? DAY 12)
     Route: 065
     Dates: start: 20200402, end: 20200410
  2. INSULIN [Concomitant]
     Active Substance: INSULIN NOS
     Dosage: 25 IU (AT NIGHT)
     Route: 065
  3. METFORMIN [Concomitant]
     Active Substance: METFORMIN HYDROCHLORIDE
     Indication: TYPE 2 DIABETES MELLITUS
     Dosage: 850 MG, Q8H
     Route: 065
  4. CEFTRIAXONE. [Concomitant]
     Active Substance: CEFTRIAXONE
     Indication: PRODUCT USED FOR UNKNOWN INDICATION
     Dosage: UNK (DAY 3? DAY7)
     Route: 065
     Dates: start: 20200401, end: 20200405
  5. FENTANYL. [Concomitant]
     Active Substance: FENTANYL
     Indication: PRODUCT USED FOR UNKNOWN INDICATION
     Dosage: UNK (DAY 2? DAY 12)
     Route: 065
     Dates: start: 20200331, end: 20200410
  6. LOPINAVIR/RITONAVIR [Suspect]
     Active Substance: LOPINAVIR\RITONAVIR
     Indication: COVID-19
     Dosage: UNK (DAY 3? DAY 4)
     Route: 065
     Dates: start: 20200401, end: 20200402
  7. CHLOROQUINE. [Suspect]
     Active Substance: CHLOROQUINE
     Indication: COVID-19
     Dosage: UNK (DAY 3)
     Route: 065
     Dates: start: 20200401, end: 20200401
  8. BEZAFIBRATE [Concomitant]
     Active Substance: BEZAFIBRATE
     Indication: HYPERTRIGLYCERIDAEMIA
     Dosage: 400 MG, Q24H
     Route: 065
  9. ENOXAPARIN [Concomitant]
     Active Substance: ENOXAPARIN
     Indication: PRODUCT USED FOR UNKNOWN INDICATION
     Dosage: UNK (DAY 1? DAY 12)
     Route: 065
     Dates: start: 20200330, end: 20200410
  10. PARACETAMOL [Concomitant]
     Active Substance: ACETAMINOPHEN
     Indication: PRODUCT USED FOR UNKNOWN INDICATION
     Dosage: UNK (DAY 1? DAY 12 AS PER NEEDED)
     Route: 065
     Dates: start: 20200330, end: 20200410
  11. FUROSEMIDE. [Concomitant]
     Active Substance: FUROSEMIDE
     Indication: PRODUCT USED FOR UNKNOWN INDICATION
     Dosage: UNK (DAY3? DAY 12)
     Route: 065
     Dates: start: 20200401, end: 20200410
  12. AZITHROMYCIN ANHYDROUS. [Suspect]
     Active Substance: AZITHROMYCIN ANHYDROUS
     Indication: COVID-19
     Dosage: UNK (DAY 1? DAY 5)
     Route: 065
     Dates: start: 20200330, end: 20200403
  13. DEXMEDETOMIDINE. [Concomitant]
     Active Substance: DEXMEDETOMIDINE
     Indication: PRODUCT USED FOR UNKNOWN INDICATION
     Dosage: UNK (DAY 9? DAY 12)
     Route: 065
     Dates: start: 20200407, end: 20200410
  14. MIDAZOLAM. [Concomitant]
     Active Substance: MIDAZOLAM
     Indication: PRODUCT USED FOR UNKNOWN INDICATION
     Dosage: UNK (DAY 2? DAY 12)
     Route: 065
     Dates: start: 20200331, end: 20200410
  15. OSELTAMIVIR [Concomitant]
     Active Substance: OSELTAMIVIR
     Indication: PRODUCT USED FOR UNKNOWN INDICATION
     Dosage: UNK (DAY 1 TO DAY 7)
     Route: 065
     Dates: start: 20200330, end: 20200405
  16. INSULIN [Concomitant]
     Active Substance: INSULIN NOS
     Indication: TYPE 2 DIABETES MELLITUS
     Dosage: 15 IU (IN MORNING)
     Route: 065
  17. INSULIN [Concomitant]
     Active Substance: INSULIN NOS
     Dosage: UNK (DAY 1? DAY 12 RAPID ACTING INSULIN)
     Route: 065
     Dates: start: 20200331, end: 20200410
  18. METHYLPREDNISOLONE. [Concomitant]
     Active Substance: METHYLPREDNISOLONE
     Indication: PRODUCT USED FOR UNKNOWN INDICATION
     Dosage: UNK (DAY 3? DAY 4)
     Route: 065
     Dates: start: 20200401, end: 20200402
  19. VECURONIUM [Concomitant]
     Active Substance: VECURONIUM BROMIDE
     Indication: PRODUCT USED FOR UNKNOWN INDICATION
     Dosage: UNK (DAY 7)
     Route: 065
     Dates: start: 20200405, end: 20200405

REACTIONS (2)
  - Sinus bradycardia [Unknown]
  - Product use in unapproved indication [Unknown]
